FAERS Safety Report 16833390 (Version 1)
Quarter: 2019Q3

REPORT INFORMATION
  Report Type: Spontaneous
  Country: US (occurrence: US)
  Receive Date: 20190731
  Receipt Date: 20190731
  Transmission Date: 20191005
  Serious: Yes (Death, Hospitalization)
  Sender: FDA-Public Use
  Company Number: None

PATIENT
  Age: 66 Year
  Sex: Male
  Weight: 124.8 kg

DRUGS (3)
  1. RITUXIMAB (MOAB C2B8 ANTI CD20, CHIMERIC) [Suspect]
     Active Substance: RITUXIMAB
     Dates: end: 20150604
  2. FLUDARABINE PHOSPHATE. [Suspect]
     Active Substance: FLUDARABINE PHOSPHATE
  3. CYCLOPHOSPHAMIDE. [Suspect]
     Active Substance: CYCLOPHOSPHAMIDE
     Dates: end: 20150606

REACTIONS (12)
  - Performance status decreased [None]
  - Renal failure [None]
  - Dialysis [None]
  - Delirium [None]
  - Neurological symptom [None]
  - Respiratory failure [None]
  - Febrile neutropenia [None]
  - Myelodysplastic syndrome [None]
  - Apnoea [None]
  - Erythroleukaemia [None]
  - Confusional state [None]
  - Ventricular fibrillation [None]

NARRATIVE: CASE EVENT DATE: 20180118
